FAERS Safety Report 18968791 (Version 1)
Quarter: 2021Q1

REPORT INFORMATION
  Report Type: Spontaneous
  Country: US (occurrence: US)
  Receive Date: 20210304
  Receipt Date: 20210304
  Transmission Date: 20210420
  Serious: Yes (Other)
  Sender: FDA-Public Use
  Company Number: US-SA-2021SA063590

PATIENT
  Sex: Female

DRUGS (1)
  1. AMBIEN [Suspect]
     Active Substance: ZOLPIDEM TARTRATE

REACTIONS (2)
  - Hallucination [Unknown]
  - Condition aggravated [Unknown]
